FAERS Safety Report 4943357-5 (Version None)
Quarter: 2006Q1

REPORT INFORMATION
  Report Type: 
  Country: None (occurrence: None)
  Receive Date: 20060309
  Receipt Date: 20060217
  Transmission Date: 20060701
  Serious: Yes (Other)
  Sender: FDA-Public Use
  Company Number: 23100255

PATIENT
  Age: 74 Year
  Sex: Male
  Weight: 79.8 kg

DRUGS (8)
  1. NOVASTAN [Suspect]
     Indication: HEPARIN-INDUCED THROMBOCYTOPENIA
     Dosage: 0.08 MCG/KG/MIN IV
     Route: 042
  2. NOVASTAN [Suspect]
     Indication: HEPARIN-INDUCED THROMBOCYTOPENIA
     Dosage: 26.1 MCG/KG/MIN IV
     Route: 042
  3. ASPIRIN [Concomitant]
  4. CEFEPIME [Concomitant]
  5. METRONIDAZOLE [Concomitant]
  6. VASOPRESSIN [Concomitant]
  7. NOREPINEPHRINE [Concomitant]
  8. TPN [Concomitant]

REACTIONS (10)
  - ACCIDENTAL OVERDOSE [None]
  - ACTIVATED PARTIAL THROMBOPLASTIN TIME PROLONGED [None]
  - ATRIAL FIBRILLATION [None]
  - HAEMODIALYSIS [None]
  - HYPOTENSION [None]
  - MALAISE [None]
  - OVERDOSE [None]
  - PROTHROMBIN TIME PROLONGED [None]
  - RENAL IMPAIRMENT [None]
  - WRONG DRUG ADMINISTERED [None]
